FAERS Safety Report 11428732 (Version 1)
Quarter: 2015Q3

REPORT INFORMATION
  Report Type: Spontaneous
  Country: NL (occurrence: NL)
  Receive Date: 20150828
  Receipt Date: 20150828
  Transmission Date: 20151125
  Serious: Yes (Other)
  Sender: FDA-Public Use
  Company Number: NL-009507513-1508NLD011205

PATIENT
  Sex: Female

DRUGS (1)
  1. EZETROL [Suspect]
     Active Substance: EZETIMIBE
     Indication: HYPERCHOLESTEROLAEMIA
     Dosage: UNK
     Route: 048

REACTIONS (3)
  - Transient ischaemic attack [Unknown]
  - Cerebral infarction [Unknown]
  - Adverse event [Unknown]
